FAERS Safety Report 11410926 (Version 1)
Quarter: 2015Q3

REPORT INFORMATION
  Report Type: Report from Study
  Country: US (occurrence: US)
  Receive Date: 20150824
  Receipt Date: 20150824
  Transmission Date: 20151125
  Serious: Yes (Other)
  Sender: FDA-Public Use
  Company Number: US-BAYER-2015-402509

PATIENT
  Sex: Male

DRUGS (1)
  1. STIVARGA [Suspect]
     Active Substance: REGORAFENIB
     Indication: COLON CANCER
     Dosage: 160 MG, QD
     Route: 048
     Dates: start: 20150729

REACTIONS (4)
  - Pre-existing condition improved [None]
  - Muscular weakness [None]
  - Fatigue [Not Recovered/Not Resolved]
  - Gait disturbance [None]

NARRATIVE: CASE EVENT DATE: 20150801
